FAERS Safety Report 24284718 (Version 1)
Quarter: 2024Q3

REPORT INFORMATION
  Report Type: Spontaneous
  Country: US (occurrence: US)
  Receive Date: 20240905
  Receipt Date: 20240905
  Transmission Date: 20241017
  Serious: Yes (Other)
  Sender: Unknown Manufacturer
  Company Number: US-MIRUM PHARMACEUTICALS, INC.-US-MIR-24-00650

PATIENT
  Sex: Male

DRUGS (2)
  1. LIVMARLI [Suspect]
     Active Substance: MARALIXIBAT CHLORIDE
     Indication: Progressive familial intrahepatic cholestasis
     Dosage: 2.2 MILLILITER, BID
     Route: 048
     Dates: start: 2014, end: 2022
  2. LIVMARLI [Suspect]
     Active Substance: MARALIXIBAT CHLORIDE
     Dosage: UNK
     Route: 065
     Dates: start: 2023

REACTIONS (11)
  - Liver function test increased [Recovered/Resolved]
  - Insomnia [Unknown]
  - Eye pruritus [Unknown]
  - Liver disorder [Unknown]
  - Pruritus [Unknown]
  - Nasopharyngitis [Unknown]
  - Lethargy [Unknown]
  - Laboratory test abnormal [Recovered/Resolved]
  - Treatment noncompliance [Unknown]
  - Therapy interrupted [Unknown]
  - Drug ineffective [Unknown]

NARRATIVE: CASE EVENT DATE: 20200101
